FAERS Safety Report 4505128-3 (Version None)
Quarter: 2004Q4

REPORT INFORMATION
  Report Type: 
  Country: None (occurrence: None)
  Receive Date: 20041021
  Receipt Date: 20040719
  Transmission Date: 20050328
  Serious: Yes (Hospitalization)
  Sender: FDA-Public Use
  Company Number: 2004UW15111

PATIENT
  Age: 85 Year
  Sex: Female
  Weight: 56.6996 kg

DRUGS (7)
  1. PRILOSEC OTC [Suspect]
     Indication: GASTROOESOPHAGEAL REFLUX DISEASE
     Dosage: 1 DF QD PO
     Route: 048
     Dates: start: 20040415
  2. CORDARONE [Concomitant]
  3. COZAAR [Concomitant]
  4. CARDIAZEM [Concomitant]
  5. THYROID MEDICINE [Concomitant]
  6. PREDNISONE [Concomitant]
  7. ALLEGRA [Concomitant]

REACTIONS (6)
  - ABDOMINAL PAIN LOWER [None]
  - ABDOMINAL PAIN UPPER [None]
  - ARTHRALGIA [None]
  - BACK PAIN [None]
  - CHEST PAIN [None]
  - PAIN IN EXTREMITY [None]
